FAERS Safety Report 9635961 (Version 1)
Quarter: 2013Q4

REPORT INFORMATION
  Report Type: Spontaneous
  Country: US (occurrence: US)
  Receive Date: 20131021
  Receipt Date: 20131021
  Transmission Date: 20140711
  Serious: No
  Sender: FDA-Public Use
  Company Number: US-009507513-1310USA008845

PATIENT
  Sex: Female

DRUGS (1)
  1. SAPHRIS [Suspect]
     Indication: BIPOLAR DISORDER
     Dosage: 10 MG, QPM
     Route: 060
     Dates: start: 201309, end: 2013

REACTIONS (2)
  - Nausea [Recovered/Resolved]
  - Dyskinesia [Recovered/Resolved]
